FAERS Safety Report 6122251-0 (Version None)
Quarter: 2009Q1

REPORT INFORMATION
  Report Type: 
  Country: None (occurrence: None)
  Receive Date: 20090316
  Receipt Date: 20090302
  Transmission Date: 20090719
  Serious: Yes (Death, Hospitalization)
  Sender: FDA-Public Use
  Company Number: CERZ-1000531

PATIENT
  Age: 15 Month
  Sex: Male

DRUGS (1)
  1. CEREZYME [Suspect]
     Indication: GAUCHER'S DISEASE
     Dosage: 1000 MG, Q2W
     Dates: start: 20080701, end: 20081016

REACTIONS (2)
  - BRONCHITIS [None]
  - INFLUENZA [None]
